FAERS Safety Report 7398898-0 (Version None)
Quarter: 2011Q1

REPORT INFORMATION
  Report Type: 
  Country: None (occurrence: None)
  Receive Date: 20110328
  Receipt Date: 20110222
  Transmission Date: 20110831
  Serious: No
  Sender: FDA-Public Use
  Company Number: 2011-00076

PATIENT
  Age: 63 Year
  Sex: Male
  Weight: 131.5431 kg

DRUGS (2)
  1. ZICAM COLD REMEDY RAPIDMELTS WITH VITAMIN C [Suspect]
     Dosage: AS DIRECTED, ONGOING
     Dates: start: 20110215
  2. CONTAC [Concomitant]

REACTIONS (1)
  - AGEUSIA [None]
